FAERS Safety Report 4371091-1 (Version None)
Quarter: 2004Q2

REPORT INFORMATION
  Report Type: 
  Country: None (occurrence: None)
  Receive Date: 20040601
  Receipt Date: 20040520
  Transmission Date: 20050107
  Serious: Yes (Death, Hospitalization)
  Sender: FDA-Public Use
  Company Number: 163-20785-04040558

PATIENT
  Age: 71 Year
  Sex: Female

DRUGS (11)
  1. THALOMID [Suspect]
     Indication: MULTIPLE MYELOMA
     Dosage: 200 MG, QHS, ORAL
     Route: 048
     Dates: start: 20040220, end: 20040414
  2. NORVASC [Concomitant]
  3. ACETYLSALICYLIC ACID SRT [Concomitant]
  4. DECADRON [Concomitant]
  5. ZOCOR [Concomitant]
  6. NEXIUM [Concomitant]
  7. COUMADIN [Concomitant]
  8. PERCOCET [Concomitant]
  9. COLACE (DOCUSATE SODIUM) [Concomitant]
  10. DARVOCET [Concomitant]
  11. SUDAFED 12 HOUR [Concomitant]

REACTIONS (4)
  - ASTHENIA [None]
  - PNEUMONIA [None]
  - RESPIRATORY FAILURE [None]
  - WEIGHT DECREASED [None]
